FAERS Safety Report 6054710-3 (Version None)
Quarter: 2009Q1

REPORT INFORMATION
  Report Type: 
  Country: None (occurrence: None)
  Receive Date: 20090128
  Receipt Date: 20090121
  Transmission Date: 20090719
  Serious: Yes (Hospitalization)
  Sender: FDA-Public Use
  Company Number: US-ALLERGAN-0900753US

PATIENT
  Sex: Female
  Weight: 40.816 kg

DRUGS (1)
  1. BOTOX [Suspect]
     Indication: MUSCLE SPASTICITY
     Dosage: 1100 UNITS, SINGLE
     Route: 030
     Dates: start: 20081217, end: 20081217

REACTIONS (3)
  - ANOREXIA [None]
  - DYSPHAGIA [None]
  - SPEECH DISORDER [None]
